FAERS Safety Report 14240184 (Version 1)
Quarter: 2017Q4

REPORT INFORMATION
  Report Type: Report from Study
  Country: US (occurrence: US)
  Receive Date: 20171130
  Receipt Date: 20171130
  Transmission Date: 20180321
  Serious: Yes (Other)
  Sender: FDA-Public Use
  Company Number: US-SEBELA IRELAND LIMITED-2017SEB00482

PATIENT
  Sex: Male

DRUGS (2)
  1. IMURAN [Suspect]
     Active Substance: AZATHIOPRINE
     Dosage: UNK
     Route: 048
     Dates: start: 201609
  2. HUMIRA [Suspect]
     Active Substance: ADALIMUMAB
     Indication: CROHN^S DISEASE
     Dosage: 40 MG, 2X/MONTH
     Route: 058
     Dates: start: 201609

REACTIONS (7)
  - Weight increased [Unknown]
  - Muscle twitching [Unknown]
  - Haemoglobin decreased [Unknown]
  - Seizure [Recovered/Resolved]
  - Blood iron decreased [Unknown]
  - Fatigue [Unknown]
  - Alopecia [Unknown]
